FAERS Safety Report 21085725 (Version 1)
Quarter: 2022Q3

REPORT INFORMATION
  Report Type: Spontaneous
  Country: US (occurrence: US)
  Receive Date: 20220715
  Receipt Date: 20220715
  Transmission Date: 20221027
  Serious: Yes (Other)
  Sender: FDA-Public Use
  Company Number: US-drreddys-LIT/USA/22/0152167

PATIENT
  Age: 18 Year
  Sex: Female

DRUGS (4)
  1. TACROLIMUS [Interacting]
     Active Substance: TACROLIMUS
     Indication: Immunosuppressant drug therapy
  2. TACROLIMUS [Interacting]
     Active Substance: TACROLIMUS
     Dosage: REDUCED TO 1G THRICE DAILY
  3. ELEXACAFTOR\IVACAFTOR\TEZACAFTOR [Suspect]
     Active Substance: ELEXACAFTOR\IVACAFTOR\TEZACAFTOR
     Indication: Immunosuppressant drug therapy
     Dosage: 100/75/50MG IN THE MORNING
  4. ELEXACAFTOR\IVACAFTOR\TEZACAFTOR [Suspect]
     Active Substance: ELEXACAFTOR\IVACAFTOR\TEZACAFTOR
     Dosage: AFTER 3.6 WEEKS OF TREATMENT, THE DOSE INCREASED TO ELEXACAFTOR/IVACAFTOR/TEZACAFTOR TABLET 200/150/

REACTIONS (2)
  - Drug interaction [Unknown]
  - Drug level increased [Recovering/Resolving]
